FAERS Safety Report 19803732 (Version 1)
Quarter: 2021Q3

REPORT INFORMATION
  Report Type: Spontaneous
  Country: US (occurrence: US)
  Receive Date: 20210908
  Receipt Date: 20210908
  Transmission Date: 20211014
  Serious: No
  Sender: FDA-Public Use
  Company Number: US-BIOGEN-2021BI00977619

PATIENT
  Age: 44 Year
  Sex: Male

DRUGS (5)
  1. VUMERITY [Suspect]
     Active Substance: DIROXIMEL FUMARATE
     Dosage: ONE 231 MG CAPSULE QD AM AND TWO 231 MG CAPSULES QD PM
     Route: 048
     Dates: start: 20210131
  2. VUMERITY [Suspect]
     Active Substance: DIROXIMEL FUMARATE
     Dosage: 1 CAP IN AM AND 2 IN PM
     Route: 065
  3. VUMERITY [Suspect]
     Active Substance: DIROXIMEL FUMARATE
     Dosage: ONE 231 MG CAPSULE QD AM AND TWO 231 MG CAPSULES QD PM
     Route: 048
     Dates: start: 20210131
  4. VUMERITY [Suspect]
     Active Substance: DIROXIMEL FUMARATE
     Indication: MULTIPLE SCLEROSIS
     Dosage: STARTING DOSE
     Route: 048
     Dates: start: 20210124, end: 20210130
  5. VUMERITY [Suspect]
     Active Substance: DIROXIMEL FUMARATE
     Route: 048
     Dates: start: 202101

REACTIONS (2)
  - Flushing [Unknown]
  - Intentional underdose [Unknown]

NARRATIVE: CASE EVENT DATE: 20210124
